FAERS Safety Report 12706434 (Version 1)
Quarter: 2016Q3

REPORT INFORMATION
  Report Type: Spontaneous
  Country: US (occurrence: US)
  Receive Date: 20160901
  Receipt Date: 20160901
  Transmission Date: 20161109
  Serious: No
  Sender: FDA-Public Use
  Company Number: US-PFIZER INC-2016409059

PATIENT
  Age: 77 Year
  Sex: Female
  Weight: 56.24 kg

DRUGS (2)
  1. IBRANCE [Suspect]
     Active Substance: PALBOCICLIB
     Indication: BREAST CANCER METASTATIC
     Dosage: 125 MG, CYCLIC (1 CAPSULE BY MOUTH EVERY DAY, AFTER LUNCH AT 1 PM, FOR 21 DAYS EVERY 28 DAYS)
     Route: 048
     Dates: start: 20160817
  2. FASLODEX [Concomitant]
     Active Substance: FULVESTRANT
     Dosage: UNK

REACTIONS (3)
  - Eye swelling [Recovered/Resolved]
  - Weight increased [Unknown]
  - Fatigue [Unknown]
